FAERS Safety Report 11930033 (Version 1)
Quarter: 2016Q1

REPORT INFORMATION
  Report Type: Spontaneous
  Country: US (occurrence: None)
  Receive Date: 20160120
  Receipt Date: 20160120
  Transmission Date: 20160526
  Serious: No
  Sender: FDA-Public Use
  Company Number: None

PATIENT
  Age: 6 Year
  Sex: Female

DRUGS (2)
  1. AZITHROMYCIN ANHYDROUS. [Suspect]
     Active Substance: AZITHROMYCIN ANHYDROUS
     Indication: INFECTION
     Route: 048
     Dates: start: 20160117, end: 20160117
  2. GENERIC (WALGREENS BRAND) DIMETAPP COUGH AND COLD [Concomitant]

REACTIONS (4)
  - Retching [None]
  - Oral discomfort [None]
  - Unevaluable event [None]
  - Dysgeusia [None]

NARRATIVE: CASE EVENT DATE: 20160117
